FAERS Safety Report 6794497-X (Version None)
Quarter: 2010Q2

REPORT INFORMATION
  Report Type: 
  Country: None (occurrence: None)
  Receive Date: 20100625
  Receipt Date: 20100616
  Transmission Date: 20101027
  Serious: Yes (Other)
  Sender: FDA-Public Use
  Company Number: GB-PFIZER INC-2008024539

PATIENT
  Age: 28 Year
  Sex: Female
  Weight: 68 kg

DRUGS (3)
  1. PROSTIN E2 [Suspect]
     Indication: LABOUR INDUCTION
     Route: 067
     Dates: start: 20060614, end: 20060616
  2. GAVISCON [Concomitant]
     Indication: DYSPEPSIA
     Route: 048
  3. LORATADINE [Concomitant]
     Indication: SEASONAL ALLERGY
     Route: 048

REACTIONS (1)
  - HYPERTENSION [None]
